FAERS Safety Report 5599442-0 (Version None)
Quarter: 2008Q1

REPORT INFORMATION
  Report Type: 
  Country: None (occurrence: None)
  Receive Date: 20080122
  Receipt Date: 20080114
  Transmission Date: 20080703
  Serious: Yes (Other)
  Sender: FDA-Public Use
  Company Number: US-PFIZER INC-2008004582

PATIENT
  Sex: Male
  Weight: 68.5 kg

DRUGS (3)
  1. VIAGRA [Suspect]
     Indication: ERECTILE DYSFUNCTION
     Dates: start: 20080110, end: 20080110
  2. MILK THISTLE [Concomitant]
  3. HOMEOPATHIC PREPARATION [Concomitant]

REACTIONS (5)
  - EXTRAOCULAR MUSCLE DISORDER [None]
  - EYE PAIN [None]
  - EYE SWELLING [None]
  - OPTIC NERVE DISORDER [None]
  - SINUS CONGESTION [None]
